FAERS Safety Report 20776985 (Version 2)
Quarter: 2022Q2

REPORT INFORMATION
  Report Type: Spontaneous
  Country: US (occurrence: US)
  Receive Date: 20220502
  Receipt Date: 20220607
  Transmission Date: 20220721
  Serious: No
  Sender: FDA-Public Use
  Company Number: US-BAXTER-2022BAX009598

PATIENT
  Age: 66 Year
  Sex: Male

DRUGS (1)
  1. DIANEAL LOW CALCIUM PERITONEAL DIALYSIS SOLUTION WITH DEXTROSE [Suspect]
     Active Substance: CALCIUM CHLORIDE\DEXTROSE\MAGNESIUM CHLORIDE\SODIUM CHLORIDE\SODIUM LACTATE
     Indication: Peritoneal dialysis
     Dosage: UNK
     Route: 033
     Dates: start: 202202, end: 202204

REACTIONS (4)
  - Dermatitis contact [Unknown]
  - Procedural pain [Recovered/Resolved]
  - Catheter site pruritus [Not Recovered/Not Resolved]
  - Catheter site swelling [Not Recovered/Not Resolved]

NARRATIVE: CASE EVENT DATE: 20220201
